FAERS Safety Report 4889997-3 (Version None)
Quarter: 2006Q1

REPORT INFORMATION
  Report Type: 
  Country: None (occurrence: None)
  Receive Date: 20060124
  Receipt Date: 20060111
  Transmission Date: 20060701
  Serious: Yes (Hospitalization)
  Sender: FDA-Public Use
  Company Number: DE-NOVOPROD-249975

PATIENT
  Age: 72 Year
  Sex: Female
  Weight: 66 kg

DRUGS (5)
  1. NOVORAPID FLEXPEN [Suspect]
     Indication: INSULIN-REQUIRING TYPE II DIABETES MELLITUS
     Dosage: 26 U, QD
     Route: 058
     Dates: start: 20051022
  2. INSULIN DETEMIR FLEXPEN [Suspect]
     Dosage: 6 U, QD
     Route: 058
     Dates: start: 20051219
  3. TILIDIN COMP ^ALIUD PHARMA^ [Concomitant]
     Dosage: UNK, BID
     Route: 048
     Dates: start: 19800101
  4. LEVODOPA [Concomitant]
     Dosage: 1 UNK, QD
     Route: 048
     Dates: start: 19950101
  5. FLUPIRTINE MALEATE [Concomitant]
     Dosage: 100 MG, TID
     Route: 048
     Dates: start: 19800101

REACTIONS (1)
  - LOSS OF CONSCIOUSNESS [None]
